FAERS Safety Report 5552151-6 (Version None)
Quarter: 2007Q4

REPORT INFORMATION
  Report Type: 
  Country: None (occurrence: None)
  Receive Date: 20071212
  Receipt Date: 20070611
  Transmission Date: 20080405
  Serious: No
  Sender: FDA-Public Use
  Company Number: US-AMGEN-KDL229034

PATIENT
  Sex: Female

DRUGS (2)
  1. ENBREL [Suspect]
     Indication: RHEUMATOID ARTHRITIS
     Route: 058
     Dates: start: 20070323, end: 20070330
  2. METHOTREXATE [Concomitant]
     Dates: start: 19970101

REACTIONS (3)
  - BRONCHITIS [None]
  - MALAISE [None]
  - NOSOPHOBIA [None]
